FAERS Safety Report 5947633-9 (Version None)
Quarter: 2008Q4

REPORT INFORMATION
  Report Type: 
  Country: None (occurrence: None)
  Receive Date: 20081107
  Receipt Date: 20081024
  Transmission Date: 20090506
  Serious: Yes (Other)
  Sender: FDA-Public Use
  Company Number: DSU-2008-01765

PATIENT
  Age: 59 Year
  Sex: Female
  Weight: 68.0396 kg

DRUGS (6)
  1. BENICAR [Suspect]
     Indication: HYPERTENSION
     Dosage: 20 MG (20 MG, QD), PER ORAL
     Route: 048
     Dates: start: 20060101
  2. SYNTHROID [Concomitant]
  3. CRESTOR (ROSUVASTATIN) (ROSUVASTATIN) [Concomitant]
  4. PREVACID (LANSOPRAZOLE) (LANSOPRAZOLE) [Concomitant]
  5. LOVAZA [Concomitant]
  6. CALCIUM (CALCIUM) (CALCIUM) [Concomitant]

REACTIONS (2)
  - DIZZINESS [None]
  - TYPE 2 DIABETES MELLITUS [None]
